FAERS Safety Report 17365150 (Version 1)
Quarter: 2020Q1

REPORT INFORMATION
  Report Type: Spontaneous
  Country: NL (occurrence: NL)
  Receive Date: 20200204
  Receipt Date: 20200204
  Transmission Date: 20200409
  Serious: Yes (Other)
  Sender: FDA-Public Use
  Company Number: NL-AUROBINDO-AUR-APL-2020-005164

PATIENT
  Sex: Female
  Weight: 51 kg

DRUGS (4)
  1. DEPAKINE [Suspect]
     Active Substance: VALPROATE SODIUM
     Indication: BEHAVIOUR DISORDER
     Dosage: 500 MILLIGRAM, TWO TIMES A DAY
     Route: 065
     Dates: start: 2013
  2. IMIPRAMINE [Suspect]
     Active Substance: IMIPRAMINE
     Indication: PRODUCT USED FOR UNKNOWN INDICATION
     Dosage: 20 MILLIGRAM, ONCE A DAY
     Route: 065
     Dates: start: 201908, end: 20200107
  3. PAROXETIN FILM-COATED TABLET 30MG [Suspect]
     Active Substance: PAROXETINE
     Indication: DEPRESSED MOOD
     Dosage: 30 MILLIGRAM, ONCE A DAY
     Route: 065
     Dates: start: 20141225
  4. DEPAKINE [Suspect]
     Active Substance: VALPROATE SODIUM
     Dosage: 300 MILLIGRAM, TWO TIMES A DAY
     Route: 065
     Dates: start: 201910

REACTIONS (1)
  - Dysphagia [Recovering/Resolving]
